FAERS Safety Report 23539729 (Version 1)
Quarter: 2024Q1

REPORT INFORMATION
  Report Type: Spontaneous
  Country: US (occurrence: US)
  Receive Date: 20240219
  Receipt Date: 20240219
  Transmission Date: 20240410
  Serious: Yes (Disabling)
  Sender: FDA-Public Use
  Company Number: US-SA-SAC20240215000547

PATIENT
  Age: 53 Year
  Sex: Female

DRUGS (1)
  1. DUPIXENT [Suspect]
     Active Substance: DUPILUMAB
     Indication: Dermatitis atopic
     Dosage: 300 MG, QOW
     Route: 058
     Dates: start: 20240116

REACTIONS (5)
  - Loss of personal independence in daily activities [Unknown]
  - Eczema [Unknown]
  - Pruritus [Unknown]
  - Initial insomnia [Unknown]
  - Affective disorder [Unknown]

NARRATIVE: CASE EVENT DATE: 20240101
